FAERS Safety Report 22592144 (Version 1)
Quarter: 2023Q2

REPORT INFORMATION
  Report Type: Spontaneous
  Country: CN (occurrence: CN)
  Receive Date: 20230612
  Receipt Date: 20230612
  Transmission Date: 20230721
  Serious: Yes (Other)
  Sender: FDA-Public Use
  Company Number: CN-STRIDES ARCOLAB LIMITED-2023SP009286

PATIENT
  Age: 60 Year
  Sex: Female

DRUGS (11)
  1. DEXAMETHASONE [Suspect]
     Active Substance: DEXAMETHASONE
     Indication: Philadelphia positive acute lymphocytic leukaemia
     Dosage: 6 MILLIGRAM/SQ. METER (ON DAYS 1-14)
     Route: 048
  2. METHOTREXATE [Suspect]
     Active Substance: METHOTREXATE
     Indication: Philadelphia positive acute lymphocytic leukaemia
     Dosage: 20 MILLIGRAM/SQ. METER (ON DAY 1, DAY 8 AND DAY 15)
     Route: 048
  3. FLUMATINIB [Suspect]
     Active Substance: FLUMATINIB
     Indication: Philadelphia positive acute lymphocytic leukaemia
     Dosage: 600 MILLIGRAM (PER DAY)
     Route: 048
  4. MERCAPTOPURINE [Suspect]
     Active Substance: MERCAPTOPURINE
     Indication: Philadelphia positive acute lymphocytic leukaemia
     Dosage: 50 MILLIGRAM/SQ. METER (ON DAYS 22-28)
     Route: 048
  5. VENETOCLAX [Suspect]
     Active Substance: VENETOCLAX
     Indication: Philadelphia positive acute lymphocytic leukaemia
     Dosage: 100 MILLIGRAM, CYCLICAL (ON DAY 1 IN A 28 DAYS CYCLE FOR 4 WEEKS)
     Route: 048
  6. VENETOCLAX [Suspect]
     Active Substance: VENETOCLAX
     Dosage: 200 MILLIGRAM, CYCLICAL (ON DAY 2 IN A 28 DAYS CYCLE FOR 4 WEEKS)
     Route: 048
  7. VENETOCLAX [Suspect]
     Active Substance: VENETOCLAX
     Dosage: 300 MILLIGRAM, CYCLICAL (ON DAY 3 IN A 28 DAYS CYCLE FOR 4 WEEKS)
     Route: 048
  8. VENETOCLAX [Suspect]
     Active Substance: VENETOCLAX
     Dosage: 400 MILLIGRAM, CYCLICAL (ON DAY ON DAY 4-28 IN A 28 DAYS CYCLE FOR 4 WEEKS)
     Route: 048
  9. VINCRISTINE [Suspect]
     Active Substance: VINCRISTINE
     Indication: Philadelphia positive acute lymphocytic leukaemia
     Dosage: 2 MILLIGRAM (ON DAY 22)
     Route: 040
  10. DASATINIB [Concomitant]
     Active Substance: DASATINIB
     Indication: Philadelphia positive acute lymphocytic leukaemia
     Dosage: UNK
     Route: 065
  11. IMATINIB [Concomitant]
     Active Substance: IMATINIB
     Indication: Philadelphia positive acute lymphocytic leukaemia
     Dosage: UNK
     Route: 065

REACTIONS (3)
  - Myelosuppression [Recovered/Resolved]
  - Asthenia [Recovered/Resolved]
  - Gastrointestinal disorder [Recovered/Resolved]
